FAERS Safety Report 7862712-7 (Version None)
Quarter: 2011Q4

REPORT INFORMATION
  Report Type: 
  Country: None (occurrence: None)
  Receive Date: 20111027
  Receipt Date: 20101112
  Transmission Date: 20120403
  Serious: No
  Sender: FDA-Public Use
  Company Number: US-AMGEN-USASP2010004493

PATIENT
  Age: 66 Year
  Sex: Female

DRUGS (3)
  1. ENBREL [Suspect]
     Indication: PSORIASIS
  2. ENBREL [Suspect]
     Indication: PSORIATIC ARTHROPATHY
  3. ENBREL [Suspect]
     Indication: RHEUMATOID ARTHRITIS
     Dates: start: 20101026

REACTIONS (8)
  - HEADACHE [None]
  - NASAL CONGESTION [None]
  - INJECTION SITE ERYTHEMA [None]
  - COUGH [None]
  - INJECTION SITE SWELLING [None]
  - OROPHARYNGEAL PAIN [None]
  - TENDERNESS [None]
  - SWELLING FACE [None]
